FAERS Safety Report 16812412 (Version 1)
Quarter: 2019Q3

REPORT INFORMATION
  Report Type: Spontaneous
  Country: CA (occurrence: CA)
  Receive Date: 20190916
  Receipt Date: 20190916
  Transmission Date: 20191005
  Serious: Yes (Hospitalization, Other)
  Sender: FDA-Public Use
  Company Number: CA-TEVA-2019-CA-1106989

PATIENT
  Age: 75 Year
  Sex: Female

DRUGS (9)
  1. OMALIZUMAB. [Suspect]
     Active Substance: OMALIZUMAB
     Indication: CHRONIC SPONTANEOUS URTICARIA
     Route: 065
  2. HYDROXYZINE [Concomitant]
     Active Substance: HYDROXYZINE HYDROCHLORIDE
     Indication: PRODUCT USED FOR UNKNOWN INDICATION
     Route: 065
  3. METOPROLOL. [Suspect]
     Active Substance: METOPROLOL
     Indication: HYPERTENSION
     Dosage: 50 MILLIGRAM DAILY;
     Route: 065
  4. OMALIZUMAB. [Suspect]
     Active Substance: OMALIZUMAB
     Route: 058
  5. CALCIUM PHOSPHATE/VITAMIN D3 [Concomitant]
     Indication: PRODUCT USED FOR UNKNOWN INDICATION
     Route: 065
  6. METFORMIN [Concomitant]
     Active Substance: METFORMIN HYDROCHLORIDE
     Indication: PRODUCT USED FOR UNKNOWN INDICATION
     Route: 065
  7. RANITIDINE. [Concomitant]
     Active Substance: RANITIDINE
     Indication: PRODUCT USED FOR UNKNOWN INDICATION
     Route: 065
  8. ASPIRIN/00002701/ [Concomitant]
     Indication: PRODUCT USED FOR UNKNOWN INDICATION
     Route: 065
  9. CANDESARTAN CILEXETIL. [Suspect]
     Active Substance: CANDESARTAN CILEXETIL
     Indication: HYPERTENSION
     Route: 048

REACTIONS (22)
  - Hypoaesthesia [Not Recovered/Not Resolved]
  - Urticaria [Not Recovered/Not Resolved]
  - Hand fracture [Not Recovered/Not Resolved]
  - Peripheral swelling [Not Recovered/Not Resolved]
  - Hypersensitivity [Not Recovered/Not Resolved]
  - Middle insomnia [Not Recovered/Not Resolved]
  - Depression [Not Recovered/Not Resolved]
  - Pruritus generalised [Not Recovered/Not Resolved]
  - Scratch [Not Recovered/Not Resolved]
  - Erythema [Not Recovered/Not Resolved]
  - Food allergy [Not Recovered/Not Resolved]
  - Injury [Not Recovered/Not Resolved]
  - Confusional state [Not Recovered/Not Resolved]
  - Fall [Not Recovered/Not Resolved]
  - Inflammation [Not Recovered/Not Resolved]
  - Paraesthesia [Not Recovered/Not Resolved]
  - Dry skin [Not Recovered/Not Resolved]
  - Hypokinesia [Not Recovered/Not Resolved]
  - Osteoarthritis [Not Recovered/Not Resolved]
  - Pain in extremity [Not Recovered/Not Resolved]
  - Pruritus [Not Recovered/Not Resolved]
  - Shock [Not Recovered/Not Resolved]
